FAERS Safety Report 5705668-5 (Version None)
Quarter: 2008Q2

REPORT INFORMATION
  Report Type: 
  Country: None (occurrence: None)
  Receive Date: 20080415
  Receipt Date: 20080404
  Transmission Date: 20081010
  Serious: Yes (Life-Threatening, Hospitalization, Other)
  Sender: FDA-Public Use
  Company Number: US-JNJFOC-20080401848

PATIENT
  Sex: Female
  Weight: 89.36 kg

DRUGS (3)
  1. DURAGESIC-100 [Suspect]
     Indication: MIGRAINE
     Route: 062
  2. DURAGESIC-100 [Suspect]
     Indication: PAIN
     Route: 062
  3. NORCO [Concomitant]
     Indication: PAIN
     Dosage: 10/325MG, AS NEEDED
     Route: 048

REACTIONS (10)
  - ABDOMINAL DISTENSION [None]
  - ARTHROPATHY [None]
  - CHOLELITHIASIS [None]
  - COLONIC POLYP [None]
  - CORONARY ARTERY OCCLUSION [None]
  - GASTROOESOPHAGEAL REFLUX DISEASE [None]
  - INCORRECT DRUG ADMINISTRATION DURATION [None]
  - INTERVERTEBRAL DISC PROTRUSION [None]
  - MYOCARDIAL INFARCTION [None]
  - WRONG TECHNIQUE IN DRUG USAGE PROCESS [None]
